FAERS Safety Report 20743060 (Version 1)
Quarter: 2022Q2

REPORT INFORMATION
  Report Type: Spontaneous
  Country: US (occurrence: US)
  Receive Date: 20220425
  Receipt Date: 20220425
  Transmission Date: 20220721
  Serious: No
  Sender: FDA-Public Use
  Company Number: US-ORGANON-O2203USA003033

PATIENT
  Age: 73 Year
  Sex: Female

DRUGS (6)
  1. LOTRISONE [Suspect]
     Active Substance: BETAMETHASONE DIPROPIONATE\CLOTRIMAZOLE
     Indication: Rash
     Dosage: UNK
     Route: 061
  2. VALACYCLOVIR [Suspect]
     Active Substance: VALACYCLOVIR HYDROCHLORIDE
     Indication: Rash
     Dosage: UNK
     Route: 048
  3. FLUCONAZOLE [Suspect]
     Active Substance: FLUCONAZOLE
     Indication: Rash
     Dosage: UNK
     Route: 048
  4. KETOCONAZOLE [Suspect]
     Active Substance: KETOCONAZOLE
     Indication: Rash
     Dosage: UNK
     Route: 061
  5. PREDNISONE [Suspect]
     Active Substance: PREDNISONE
     Indication: Rash
     Dosage: 10-DAY COURSE
  6. CEPHALEXIN [Suspect]
     Active Substance: CEPHALEXIN
     Indication: Rash
     Dosage: UNK
     Route: 048

REACTIONS (1)
  - Drug ineffective [Unknown]
